FAERS Safety Report 8196289-6 (Version None)
Quarter: 2012Q1

REPORT INFORMATION
  Report Type: 
  Country: None (occurrence: None)
  Receive Date: 20120229
  Receipt Date: 20100809
  Transmission Date: 20120608
  Serious: No
  Sender: FDA-Public Use
  Company Number: 010669

PATIENT
  Age: 80 Year
  Sex: Female

DRUGS (2)
  1. SAMSCA [Suspect]
     Indication: HYPONATRAEMIA
     Dosage: 15 MG, ORAL 7.5 MG, QD, ORAL
     Route: 048
  2. SAMSCA [Suspect]
     Indication: INAPPROPRIATE ANTIDIURETIC HORMONE SECRETION
     Dosage: 15 MG, ORAL 7.5 MG, QD, ORAL
     Route: 048

REACTIONS (1)
  - MOUTH ULCERATION [None]
